FAERS Safety Report 10236723 (Version 1)
Quarter: 2014Q2

REPORT INFORMATION
  Report Type: Spontaneous
  Country: US (occurrence: US)
  Receive Date: 20140613
  Receipt Date: 20140613
  Transmission Date: 20141212
  Serious: Yes (Hospitalization)
  Sender: FDA-Public Use
  Company Number: US-GLAXOSMITHKLINE-A1076442A

PATIENT
  Age: 85 Year
  Sex: Male

DRUGS (10)
  1. ADVAIR [Suspect]
     Indication: CHRONIC OBSTRUCTIVE PULMONARY DISEASE
     Dosage: 1PUFF TWICE PER DAY
     Route: 055
  2. WARFARIN [Concomitant]
  3. PRILOSEC [Concomitant]
  4. LASIX [Concomitant]
  5. METOPROLOL [Concomitant]
  6. SIMVASTATIN [Concomitant]
  7. ASPIRIN [Concomitant]
  8. POTASSIUM [Concomitant]
  9. VITAMINS [Concomitant]
  10. PROBIOTICS [Concomitant]

REACTIONS (3)
  - Pneumonia [Unknown]
  - Myalgia [Unknown]
  - Diarrhoea [Unknown]
